FAERS Safety Report 10102638 (Version 2)
Quarter: 2014Q2

REPORT INFORMATION
  Report Type: Other
  Country: US (occurrence: US)
  Receive Date: 20140424
  Receipt Date: 20140611
  Transmission Date: 20141212
  Serious: Yes (Other)
  Sender: FDA-Public Use
  Company Number: US-GSKPPD-2014GSK000210

PATIENT
  Sex: Male
  Weight: 68.1 kg

DRUGS (2)
  1. AVANDIA [Suspect]
     Indication: DIABETES MELLITUS
     Route: 048
     Dates: start: 20080812, end: 20100104
  2. PLAVIX [Concomitant]

REACTIONS (1)
  - Cerebrovascular accident [None]
